FAERS Safety Report 6885425-7 (Version None)
Quarter: 2010Q3

REPORT INFORMATION
  Report Type: 
  Country: None (occurrence: None)
  Receive Date: 20100729
  Receipt Date: 20081120
  Transmission Date: 20110219
  Serious: No
  Sender: FDA-Public Use
  Company Number: US-PFIZER INC-2008085384

PATIENT
  Sex: Female

DRUGS (5)
  1. CELEBREX [Suspect]
     Indication: OSTEOARTHRITIS
     Dates: start: 20080402
  2. SYNTHROID [Concomitant]
  3. CYCLOBENZAPRINE [Concomitant]
  4. DRUG, UNSPECIFIED [Concomitant]
  5. MEPERIDINE HCL [Concomitant]

REACTIONS (1)
  - HEADACHE [None]
